FAERS Safety Report 10779049 (Version 1)
Quarter: 2015Q1

REPORT INFORMATION
  Report Type: Spontaneous
  Country: US (occurrence: None)
  Receive Date: 20150206
  Receipt Date: 20150206
  Transmission Date: 20150721
  Serious: Yes (Other)
  Sender: FDA-Public Use
  Company Number: DEP_02484_2015

PATIENT
  Age: 68 Year
  Sex: Female
  Weight: 84.82 kg

DRUGS (5)
  1. GRALISE [Suspect]
     Active Substance: GABAPENTIN
     Indication: BURNING SENSATION
     Dosage: 1800 MG QD, AT BEDTIME ORAL
     Route: 048
     Dates: start: 2014
  2. GRALISE [Suspect]
     Active Substance: GABAPENTIN
     Indication: POST HERPETIC NEURALGIA
     Dosage: 1800 MG QD, AT BEDTIME ORAL
     Route: 048
     Dates: start: 2014
  3. GRALISE [Suspect]
     Active Substance: GABAPENTIN
     Indication: RESTLESS LEGS SYNDROME
     Dosage: 1800 MG QD, AT BEDTIME ORAL
     Route: 048
     Dates: start: 2014
  4. GRALISE [Suspect]
     Active Substance: GABAPENTIN
     Indication: MULTIPLE SCLEROSIS
     Dosage: 1800 MG QD, AT BEDTIME ORAL
     Route: 048
     Dates: start: 2014
  5. GRALISE [Suspect]
     Active Substance: GABAPENTIN
     Indication: OFF LABEL USE
     Dosage: 1800 MG QD, AT BEDTIME ORAL
     Route: 048
     Dates: start: 2014

REACTIONS (7)
  - Neovascular age-related macular degeneration [None]
  - Fall [None]
  - Upper limb fracture [None]
  - Disease recurrence [None]
  - Herpes zoster [None]
  - Unable to afford prescribed medication [None]
  - Drug ineffective [None]

NARRATIVE: CASE EVENT DATE: 20140608
